FAERS Safety Report 10462565 (Version 2)
Quarter: 2014Q4

REPORT INFORMATION
  Report Type: Spontaneous
  Country: US (occurrence: US)
  Receive Date: 20140918
  Receipt Date: 20141015
  Transmission Date: 20150528
  Serious: Yes (Hospitalization, Other)
  Sender: FDA-Public Use
  Company Number: US-ELI_LILLY_AND_COMPANY-US201409004794

PATIENT
  Age: 49 Year
  Sex: Male

DRUGS (4)
  1. HUMALOG [Suspect]
     Active Substance: INSULIN LISPRO
     Indication: TYPE 1 DIABETES MELLITUS
     Dosage: 16 U, TID
     Route: 065
  2. METFORMIN [Concomitant]
     Active Substance: METFORMIN HYDROCHLORIDE
  3. HUMALOG [Suspect]
     Active Substance: INSULIN LISPRO
     Dosage: 16 U, TID
     Route: 065
     Dates: start: 2011
  4. LANTUS [Concomitant]
     Active Substance: INSULIN GLARGINE

REACTIONS (2)
  - Diabetic complication [Unknown]
  - Drug dose omission [Recovered/Resolved]

NARRATIVE: CASE EVENT DATE: 201110
